FAERS Safety Report 24444046 (Version 2)
Quarter: 2024Q4

REPORT INFORMATION
  Report Type: Report from Study
  Country: DE (occurrence: DE)
  Receive Date: 20241016
  Receipt Date: 20241017
  Transmission Date: 20250115
  Serious: No
  Sender: ROCHE
  Company Number: DE-ROCHE-2444154

PATIENT
  Age: 41 Year
  Sex: Female

DRUGS (10)
  1. RITUXIMAB [Suspect]
     Active Substance: RITUXIMAB
     Indication: Secondary progressive multiple sclerosis
     Dosage: APPROX. 1000MG
     Route: 042
     Dates: start: 20180612
  2. RITUXIMAB [Suspect]
     Active Substance: RITUXIMAB
     Dosage: APPROX. 1000 MG
     Route: 042
     Dates: start: 20200827
  3. RITUXIMAB [Suspect]
     Active Substance: RITUXIMAB
     Route: 042
     Dates: start: 20210225
  4. RITUXIMAB [Suspect]
     Active Substance: RITUXIMAB
     Dosage: LAST INFUSION ON 08/MAR/2022
     Route: 042
     Dates: start: 202108
  5. VENLAFAXINE [Concomitant]
     Active Substance: VENLAFAXINE HYDROCHLORIDE
     Dosage: 75MG AND 37.5MG IN THE EVENING
  6. TIZANIDINE HYDROCHLORIDE [Concomitant]
     Active Substance: TIZANIDINE HYDROCHLORIDE
  7. TOLTERODINE TARTRATE [Concomitant]
     Active Substance: TOLTERODINE TARTRATE
     Dosage: 1-0-1
  8. IMIPRAMINE [Concomitant]
     Active Substance: IMIPRAMINE
  9. VIGANTOL [Concomitant]
  10. NABIXIMOLS [Concomitant]
     Active Substance: NABIXIMOLS

REACTIONS (2)
  - Off label use [Unknown]
  - No adverse event [Unknown]

NARRATIVE: CASE EVENT DATE: 20180612
